FAERS Safety Report 20676924 (Version 1)
Quarter: 2022Q2

REPORT INFORMATION
  Report Type: Spontaneous
  Country: IT (occurrence: IT)
  Receive Date: 20220406
  Receipt Date: 20220406
  Transmission Date: 20220721
  Serious: Yes (Hospitalization, Other)
  Sender: FDA-Public Use
  Company Number: None

PATIENT
  Age: 71 Year
  Sex: Female

DRUGS (10)
  1. CLOPIDOGREL BISULFATE [Suspect]
     Active Substance: CLOPIDOGREL BISULFATE
     Dosage: 1 DF, QD
     Route: 048
     Dates: start: 20210101, end: 20220118
  2. ASPIRIN [Suspect]
     Active Substance: ASPIRIN
     Dates: start: 20210101, end: 20220118
  3. PRADAXA [Suspect]
     Active Substance: DABIGATRAN ETEXILATE MESYLATE
     Dosage: 2 DF, QD
     Route: 048
     Dates: start: 20210101, end: 20220118
  4. AMIODARONE [Concomitant]
     Active Substance: AMIODARONE
  5. BISOPROLOL [Concomitant]
     Active Substance: BISOPROLOL
  6. FUROSEMIDE [Concomitant]
     Active Substance: FUROSEMIDE
  7. CANRENOIC ACID [Concomitant]
     Active Substance: CANRENOIC ACID
  8. LINAGLIPTIN [Concomitant]
     Active Substance: LINAGLIPTIN
  9. PANTOPRAZOLE SODIUM [Concomitant]
     Active Substance: PANTOPRAZOLE SODIUM
  10. ATORVASTATIN [Concomitant]
     Active Substance: ATORVASTATIN

REACTIONS (1)
  - Melaena [Not Recovered/Not Resolved]

NARRATIVE: CASE EVENT DATE: 20220118
